FAERS Safety Report 4543261-0 (Version None)
Quarter: 2004Q4

REPORT INFORMATION
  Report Type: 
  Country: None (occurrence: None)
  Receive Date: 20041229
  Receipt Date: 20041216
  Transmission Date: 20050328
  Serious: Yes (Other)
  Sender: FDA-Public Use
  Company Number: 2004112625

PATIENT
  Sex: Female

DRUGS (1)
  1. EXEMESTANE TABLET (EXEMESTANE) [Suspect]
     Indication: ILL-DEFINED DISORDER
     Dosage: ORAL
     Route: 048

REACTIONS (22)
  - ABNORMAL SENSATION IN EYE [None]
  - ANOREXIA [None]
  - APTYALISM [None]
  - ARTHRALGIA [None]
  - DECREASED IMMUNE RESPONSIVENESS [None]
  - DEPRESSION [None]
  - DIZZINESS [None]
  - DYSGEUSIA [None]
  - DYSPHAGIA [None]
  - EPISTAXIS [None]
  - HEPATIC FUNCTION ABNORMAL [None]
  - HYPERTENSION [None]
  - LACRIMATION DECREASED [None]
  - METRORRHAGIA [None]
  - NASOPHARYNGITIS [None]
  - PALPITATIONS [None]
  - PAROSMIA [None]
  - PHARYNGEAL HAEMORRHAGE [None]
  - SKIN ODOUR ABNORMAL [None]
  - SUICIDAL IDEATION [None]
  - UNEVALUABLE EVENT [None]
  - VAGINAL DISCHARGE [None]
